FAERS Safety Report 4693502-4 (Version None)
Quarter: 2005Q2

REPORT INFORMATION
  Report Type: 
  Country: None (occurrence: None)
  Receive Date: 20050617
  Receipt Date: 20041214
  Transmission Date: 20051028
  Serious: No
  Sender: FDA-Public Use
  Company Number: PHBS2004CA16962

PATIENT
  Age: 45 Year
  Sex: Female
  Weight: 42 kg

DRUGS (11)
  1. TRILEPTAL [Suspect]
     Indication: CONVULSION
     Dosage: 150 MG, BID
     Route: 048
     Dates: start: 20040601, end: 20040701
  2. TRILEPTAL [Suspect]
     Dosage: 300 MG, BID
     Route: 048
     Dates: start: 20040705
  3. AMIODARONE [Concomitant]
     Dosage: 200 MG, QD
     Route: 065
  4. COUMADIN [Concomitant]
     Dosage: 1 MG, QD
  5. LIPITOR [Concomitant]
     Dosage: 10 MG, QD
     Route: 065
  6. RENAGEL [Concomitant]
     Dosage: 800 MG/D
     Route: 065
  7. NEXIUM [Concomitant]
     Dosage: 40 MG, QD
     Route: 065
  8. EXPREX [Concomitant]
     Dosage: 6000 MG, QW3
     Route: 065
  9. REPLANT [Concomitant]
     Route: 065
  10. ROCALTROL [Concomitant]
     Dosage: 0.25 MG, QD
  11. TYLENOL [Concomitant]
     Dosage: UNK, PRN
     Route: 065

REACTIONS (3)
  - DIZZINESS [None]
  - FEELING ABNORMAL [None]
  - HYPOTENSION [None]
